FAERS Safety Report 5827364-6 (Version None)
Quarter: 2008Q3

REPORT INFORMATION
  Report Type: 
  Country: None (occurrence: None)
  Receive Date: 20080730
  Receipt Date: 20080721
  Transmission Date: 20090109
  Serious: Yes (Hospitalization, Disabling)
  Sender: FDA-Public Use
  Company Number: DE-AMGEN-US286548

PATIENT
  Sex: Male
  Weight: 87 kg

DRUGS (2)
  1. ENBREL [Suspect]
     Indication: ANKYLOSING SPONDYLITIS
     Dosage: 50 MG 1 TIME EVERY 2 - 3 WEEKS
     Route: 058
     Dates: start: 20050901, end: 20080601
  2. ALLOPURINOL [Concomitant]
     Route: 065

REACTIONS (6)
  - COGNITIVE DISORDER [None]
  - DEMYELINATION [None]
  - HELICOBACTER GASTRITIS [None]
  - MULTIPLE SCLEROSIS [None]
  - OESOPHAGITIS [None]
  - PERNICIOUS ANAEMIA [None]
